FAERS Safety Report 9675749 (Version 1)
Quarter: 2013Q4

REPORT INFORMATION
  Report Type: Report from Study
  Country: DE (occurrence: CL)
  Receive Date: 20131107
  Receipt Date: 20131107
  Transmission Date: 20140711
  Serious: Yes (Other)
  Sender: FDA-Public Use
  Company Number: DE-ACTELION-A-US2013-90985

PATIENT
  Sex: Female

DRUGS (7)
  1. VENTAVIS [Suspect]
     Indication: PULMONARY HYPERTENSION
     Dosage: UNK
     Route: 055
     Dates: start: 20130712
  2. SILDENAFIL [Concomitant]
  3. DIOSMIN [Concomitant]
  4. SPIRONOLACTONE [Concomitant]
  5. ACENOCOUMAROL [Concomitant]
  6. ARGININE [Concomitant]
  7. OXYGEN [Concomitant]

REACTIONS (4)
  - Respiratory disorder [Unknown]
  - Dyspnoea at rest [Unknown]
  - Chest pain [Unknown]
  - Syncope [Unknown]
